FAERS Safety Report 6939241-8 (Version None)
Quarter: 2010Q3

REPORT INFORMATION
  Report Type: 
  Country: None (occurrence: None)
  Receive Date: 20100824
  Receipt Date: 20100811
  Transmission Date: 20110219
  Serious: Yes (Hospitalization)
  Sender: FDA-Public Use
  Company Number: US-BAYER-201020806NA

PATIENT
  Age: 41 Year
  Sex: Female
  Weight: 87 kg

DRUGS (3)
  1. YASMIN [Suspect]
     Indication: CONTRACEPTION
     Route: 048
     Dates: start: 20070401, end: 20081101
  2. DROSPIRENONE AND EHTINYL ESTRADIOL [Suspect]
     Indication: CONTRACEPTION
     Route: 048
     Dates: start: 20080101, end: 20090701
  3. IBUPROFEN [Concomitant]
     Route: 048
     Dates: start: 20080101, end: 20080101

REACTIONS (4)
  - DYSPNOEA [None]
  - MALAISE [None]
  - PULMONARY EMBOLISM [None]
  - TACHYCARDIA [None]
